FAERS Safety Report 7878063-0 (Version None)
Quarter: 2011Q4

REPORT INFORMATION
  Report Type: 
  Country: None (occurrence: None)
  Receive Date: 20111101
  Receipt Date: 20111023
  Transmission Date: 20120403
  Serious: Yes (Hospitalization, Other)
  Sender: FDA-Public Use
  Company Number: CH-BIOGENIDEC-2011BI008990

PATIENT
  Sex: Female

DRUGS (3)
  1. CITALOPRAM HYDROBROMIDE [Concomitant]
     Indication: DEPRESSION
     Dates: start: 20100201, end: 20110201
  2. YASMIN [Concomitant]
     Indication: CONTRACEPTION
  3. AVONEX [Suspect]
     Indication: RELAPSING-REMITTING MULTIPLE SCLEROSIS
     Route: 030
     Dates: start: 20091210, end: 20110304

REACTIONS (3)
  - ACUTE HEPATIC FAILURE [None]
  - HAEMOCHROMATOSIS [None]
  - JAUNDICE [None]
